FAERS Safety Report 8439302-0 (Version None)
Quarter: 2012Q2

REPORT INFORMATION
  Report Type: 
  Country: None (occurrence: None)
  Receive Date: 20120615
  Receipt Date: 20120612
  Transmission Date: 20120825
  Serious: Yes (Other)
  Sender: FDA-Public Use
  Company Number: PHHY2012AR050837

PATIENT
  Age: 94 Year
  Sex: Male

DRUGS (1)
  1. EXELON [Suspect]

REACTIONS (1)
  - ABASIA [None]
